FAERS Safety Report 23520962 (Version 1)
Quarter: 2024Q1

REPORT INFORMATION
  Report Type: Report from Study
  Country: US (occurrence: US)
  Receive Date: 20240214
  Receipt Date: 20240214
  Transmission Date: 20240409
  Serious: Yes (Other)
  Sender: FDA-Public Use
  Company Number: US-ABBVIE-5630451

PATIENT
  Sex: Female
  Weight: 54 kg

DRUGS (1)
  1. LINZESS [Suspect]
     Active Substance: LINACLOTIDE
     Indication: Gastrointestinal motility disorder
     Dosage: FORM STRENGTH: 290 MICROGRAM.?START DATE TEXT: AT LEAST 3 YEARS AGO
     Route: 048

REACTIONS (5)
  - Transient ischaemic attack [Recovered/Resolved]
  - Bradyphrenia [Not Recovered/Not Resolved]
  - Vision blurred [Recovering/Resolving]
  - Memory impairment [Not Recovered/Not Resolved]
  - Thinking abnormal [Unknown]

NARRATIVE: CASE EVENT DATE: 20230101
